FAERS Safety Report 7402177-2 (Version None)
Quarter: 2011Q2

REPORT INFORMATION
  Report Type: 
  Country: None (occurrence: None)
  Receive Date: 20110408
  Receipt Date: 20110331
  Transmission Date: 20111010
  Serious: Yes (Hospitalization)
  Sender: FDA-Public Use
  Company Number: JP-ASTELLAS-2011US001314

PATIENT
  Sex: Male

DRUGS (5)
  1. ITRIZOLE [Concomitant]
     Indication: ASPERGILLOSIS
     Dosage: UNK
     Route: 048
     Dates: end: 20081226
  2. AMBISOME [Suspect]
     Indication: ASPERGILLOSIS
     Dosage: 150 MG, UID/QD
     Route: 042
     Dates: start: 20081227, end: 20081228
  3. BAKTAR [Concomitant]
     Indication: PNEUMOCYSTIS JIROVECI PNEUMONIA
     Dosage: 2 DF, UID/QD
     Route: 048
     Dates: start: 20080101, end: 20090102
  4. TAKEPRON [Concomitant]
     Indication: GASTRIC ULCER
     Dosage: 30 MG, UID/QD
     Route: 042
     Dates: start: 20081201, end: 20090102
  5. PREDONINE [Concomitant]
     Indication: HYPERGAMMAGLOBULINAEMIA BENIGN MONOCLONAL
     Dosage: 15 MG, UID/QD
     Route: 042
     Dates: start: 20080101, end: 20090102

REACTIONS (1)
  - PANCYTOPENIA [None]
